FAERS Safety Report 12788942 (Version 1)
Quarter: 2016Q3

REPORT INFORMATION
  Report Type: Spontaneous
  Country: US (occurrence: US)
  Receive Date: 20160928
  Receipt Date: 20160928
  Transmission Date: 20161109
  Serious: Yes (Life-Threatening, Hospitalization, Other)
  Sender: FDA-Public Use
  Company Number: None

PATIENT
  Age: 44 Year
  Sex: Female
  Weight: 60.75 kg

DRUGS (7)
  1. FLUOXETINE [Concomitant]
     Active Substance: FLUOXETINE HYDROCHLORIDE
  2. CALCIUM [Concomitant]
     Active Substance: CALCIUM
  3. MAGNESIUM [Concomitant]
     Active Substance: MAGNESIUM
  4. VITAMIN D [Concomitant]
     Active Substance: CHOLECALCIFEROL
  5. MODAFINIL 200MG [Suspect]
     Active Substance: MODAFINIL
     Indication: NARCOLEPSY
     Dosage: OTHER ORAL
     Route: 048
     Dates: start: 20160901, end: 20160928
  6. FISHOIL [Concomitant]
  7. MULTIVITAMIN [Concomitant]
     Active Substance: VITAMINS

REACTIONS (11)
  - Nausea [None]
  - Nasopharyngitis [None]
  - Confusional state [None]
  - Paraesthesia [None]
  - Abdominal pain [None]
  - Panic reaction [None]
  - Hypoaesthesia [None]
  - Blood glucose decreased [None]
  - Diarrhoea [None]
  - Product quality issue [None]
  - Product contamination [None]

NARRATIVE: CASE EVENT DATE: 20160919
